FAERS Safety Report 15482870 (Version 1)
Quarter: 2018Q4

REPORT INFORMATION
  Report Type: Spontaneous
  Country: US (occurrence: US)
  Receive Date: 20181003
  Receipt Date: 20181003
  Transmission Date: 20190205
  Serious: Yes (Death)
  Sender: FDA-Public Use
  Company Number: None

PATIENT
  Age: 62 Year
  Sex: Female

DRUGS (11)
  1. BRIMONIDINE [Concomitant]
     Active Substance: BRIMONIDINE TARTRATE
  2. PANTOPRAZOLE [Concomitant]
     Active Substance: PANTOPRAZOLE
  3. JANUMET [Concomitant]
     Active Substance: METFORMIN HYDROCHLORIDE\SITAGLIPTIN PHOSPHATE
  4. TIMOLOL. [Concomitant]
     Active Substance: TIMOLOL
  5. DIGOXIN. [Concomitant]
     Active Substance: DIGOXIN
  6. SPIRONOLACTONE. [Concomitant]
     Active Substance: SPIRONOLACTONE
  7. POLYETHYLENE GLYCOL POWDER [Concomitant]
  8. LATANOPROST SOL [Concomitant]
  9. REPATHA [Suspect]
     Active Substance: EVOLOCUMAB
     Dosage: ?          OTHER FREQUENCY:EVERY 2 WEEKS;?
     Route: 058
  10. DILT-XR [Concomitant]
     Active Substance: DILTIAZEM
  11. ATROVASTATIN [Concomitant]
     Active Substance: ATORVASTATIN CALCIUM

REACTIONS (1)
  - Death [None]

NARRATIVE: CASE EVENT DATE: 20181002
